FAERS Safety Report 15946438 (Version 14)
Quarter: 2019Q2

REPORT INFORMATION
  Report Type: Spontaneous
  Country: BR (occurrence: BR)
  Receive Date: 20190211
  Receipt Date: 20190402
  Transmission Date: 20190711
  Serious: Yes (Other)
  Sender: FDA-Public Use
  Company Number: PHHY2019BR030096

PATIENT
  Age: 2 Year
  Sex: Male

DRUGS (1)
  1. TOBREX [Suspect]
     Active Substance: TOBRAMYCIN
     Indication: CONJUNCTIVITIS BACTERIAL
     Dosage: 2 GTT, Q3H
     Route: 047
     Dates: start: 20181229, end: 20190105

REACTIONS (5)
  - Eye disorder [Unknown]
  - Product quality issue [Unknown]
  - Ulcerative keratitis [Not Recovered/Not Resolved]
  - Blindness unilateral [Not Recovered/Not Resolved]
  - Eye discharge [Not Recovered/Not Resolved]

NARRATIVE: CASE EVENT DATE: 20190212
